FAERS Safety Report 5206337-0 (Version None)
Quarter: 2007Q1

REPORT INFORMATION
  Report Type: 
  Country: None (occurrence: None)
  Receive Date: 20070111
  Receipt Date: 20070102
  Transmission Date: 20070707
  Serious: Yes (Hospitalization, Other)
  Sender: FDA-Public Use
  Company Number: US-PFIZER INC-2006081490

PATIENT
  Sex: Female

DRUGS (16)
  1. NEURONTIN [Suspect]
     Indication: DEPRESSION
     Dates: start: 20011127, end: 20030101
  2. NEURONTIN [Suspect]
     Indication: BIPOLAR DISORDER
  3. TYLENOL [Suspect]
  4. PAXIL [Concomitant]
     Dates: start: 19960101, end: 20030101
  5. AMITRIPTYLINE HCL [Concomitant]
     Dates: start: 20000101, end: 20010101
  6. CLARITIN [Concomitant]
     Dates: start: 20000101, end: 20010101
  7. IMITREX [Concomitant]
  8. ZESTRIL [Concomitant]
     Dates: start: 20010405
  9. ALLEGRA [Concomitant]
     Dates: start: 20000725
  10. UNISOM [Concomitant]
     Dates: start: 20020101, end: 20030101
  11. LITHIUM CARBONATE [Concomitant]
     Dates: start: 20030101, end: 20060101
  12. PROZAC [Concomitant]
     Dates: start: 20030101, end: 20060101
  13. RESTORIL [Concomitant]
     Dates: start: 20000916
  14. REMERON [Concomitant]
     Dates: start: 20000916
  15. RISPERDAL [Concomitant]
  16. AMBIEN [Concomitant]
     Dates: start: 20010918

REACTIONS (4)
  - DRUG INEFFECTIVE [None]
  - HEPATOCELLULAR DAMAGE [None]
  - MULTIPLE DRUG OVERDOSE [None]
  - SUICIDE ATTEMPT [None]
